FAERS Safety Report 7044334-3 (Version None)
Quarter: 2010Q4

REPORT INFORMATION
  Report Type: 
  Country: None (occurrence: None)
  Receive Date: 20101014
  Receipt Date: 20101004
  Transmission Date: 20110411
  Serious: No
  Sender: FDA-Public Use
  Company Number: 2009BI012456

PATIENT
  Age: 49 Year
  Sex: Female

DRUGS (1)
  1. TYSABRI [Suspect]
     Indication: MULTIPLE SCLEROSIS
     Route: 042
     Dates: start: 20070222

REACTIONS (9)
  - BRADYPHRENIA [None]
  - DRY MOUTH [None]
  - FATIGUE [None]
  - GINGIVAL RECESSION [None]
  - HEADACHE [None]
  - MEMORY IMPAIRMENT [None]
  - MENTAL IMPAIRMENT [None]
  - MOOD ALTERED [None]
  - MULTIPLE SCLEROSIS [None]
